FAERS Safety Report 23268516 (Version 1)
Quarter: 2023Q4

REPORT INFORMATION
  Report Type: Other
  Country: US (occurrence: US)
  Receive Date: 20231206
  Receipt Date: 20231206
  Transmission Date: 20240110
  Serious: Yes (Hospitalization)
  Sender: FDA-Public Use
  Company Number: US-PPDUS-2023ST004729

PATIENT
  Age: 82 Year
  Sex: Female

DRUGS (1)
  1. ORSERDU [Suspect]
     Active Substance: ELACESTRANT
     Indication: Product used for unknown indication
     Dosage: 345MG ONCE DAILY
     Route: 048
     Dates: start: 20231018, end: 20231119

REACTIONS (1)
  - Decreased appetite [Recovering/Resolving]

NARRATIVE: CASE EVENT DATE: 20231018
